FAERS Safety Report 20820038 (Version 1)
Quarter: 2022Q2

REPORT INFORMATION
  Report Type: Report from Study
  Country: MA (occurrence: MA)
  Receive Date: 20220512
  Receipt Date: 20220512
  Transmission Date: 20220721
  Serious: Yes (Other)
  Sender: FDA-Public Use
  Company Number: MA-NOVARTISPH-NVSC2021MA074680

PATIENT
  Sex: Male

DRUGS (2)
  1. GILENYA [Suspect]
     Active Substance: FINGOLIMOD HYDROCHLORIDE
     Indication: Multiple sclerosis
     Dosage: 0.5 MG, QD
     Route: 048
     Dates: start: 20190806
  2. GILENYA [Suspect]
     Active Substance: FINGOLIMOD HYDROCHLORIDE
     Dosage: 0.5 MG
     Route: 048

REACTIONS (10)
  - Cerebellar syndrome [Unknown]
  - Pyramidal tract syndrome [Unknown]
  - Posterior interosseous syndrome [Unknown]
  - Allodynia [Unknown]
  - Demyelination [Unknown]
  - Multiple sclerosis [Unknown]
  - Gait disturbance [Unknown]
  - Limb discomfort [Unknown]
  - Fear of falling [Unknown]
  - Inappropriate schedule of product administration [Unknown]
